FAERS Safety Report 5646578-1 (Version None)
Quarter: 2008Q1

REPORT INFORMATION
  Report Type: 
  Country: None (occurrence: None)
  Receive Date: 20080228
  Receipt Date: 20080228
  Transmission Date: 20080703
  Serious: Yes (Hospitalization)
  Sender: FDA-Public Use
  Company Number: None

PATIENT
  Sex: Female
  Weight: 88.4514 kg

DRUGS (11)
  1. COUMADIN [Suspect]
     Indication: HEART RATE IRREGULAR
     Dosage: 5MG PO (1) TAB DAILY  (THERAPY DATES: PRIOR TO ADMISSION)
     Route: 048
  2. COUMADIN [Suspect]
     Indication: HEART RATE IRREGULAR
     Dosage: 1MG PO (2) TABS DAILY (THERAPY DATES: PRIOR TO ADMISSION)
     Route: 048
  3. DILTIAZEM [Concomitant]
  4. PROTONIX [Concomitant]
  5. FOSINOPRIL SODIUM [Concomitant]
  6. ATENOLOL [Concomitant]
  7. NITROFURANTOIN [Concomitant]
  8. NITROGLYCERIN [Concomitant]
  9. ALBUTEROL [Concomitant]
  10. TORSEMIDE [Concomitant]
  11. POTASSIUM CHLORIDE [Concomitant]

REACTIONS (4)
  - ACTIVATED PARTIAL THROMBOPLASTIN TIME PROLONGED [None]
  - INTERNATIONAL NORMALISED RATIO INCREASED [None]
  - PAIN IN EXTREMITY [None]
  - PROTHROMBIN TIME PROLONGED [None]
